FAERS Safety Report 4305506-1 (Version None)
Quarter: 2004Q1

REPORT INFORMATION
  Report Type: 
  Country: None (occurrence: None)
  Receive Date: 20040226
  Receipt Date: 20031107
  Transmission Date: 20041129
  Serious: No
  Sender: FDA-Public Use
  Company Number: US-BRISTOL-MYERS SQUIBB COMPANY-12431441

PATIENT
  Age: 32 Year
  Sex: Male
  Weight: 111 kg

DRUGS (8)
  1. ABILIFY [Suspect]
     Indication: PANIC ATTACK
     Route: 048
     Dates: start: 20031001
  2. ABILIFY [Suspect]
     Indication: DELUSION
     Route: 048
     Dates: start: 20031001
  3. ATENOLOL [Concomitant]
  4. LITHIUM CARBONATE [Concomitant]
  5. XANAX [Concomitant]
  6. SEROQUEL [Concomitant]
  7. CALCIUM [Concomitant]
  8. MAGNESIUM [Concomitant]

REACTIONS (1)
  - PALPITATIONS [None]
